FAERS Safety Report 7859970-1 (Version None)
Quarter: 2011Q4

REPORT INFORMATION
  Report Type: 
  Country: None (occurrence: None)
  Receive Date: 20111026
  Receipt Date: 20111026
  Transmission Date: 20120403
  Serious: No
  Sender: FDA-Public Use
  Company Number: None

PATIENT
  Sex: Male

DRUGS (17)
  1. OMEPRAZOLE [Concomitant]
  2. GLYBURIDE [Concomitant]
  3. VITAMIN D [Concomitant]
  4. ONDANSETRON [Concomitant]
  5. VITAMIN E [Concomitant]
  6. METFORMIN [Concomitant]
  7. BAYER [Concomitant]
  8. IBUPROFEN [Concomitant]
  9. RIBAVIRIN [Suspect]
     Indication: HEPATITIS C
     Dosage: 600 AM/ 400PM PO DAILY
     Route: 048
     Dates: start: 20110912
  10. PEGASYS [Suspect]
     Indication: HEPATITIS C
     Dosage: 180 MCG 0.5 ML WEEKLY SUBCUTANEOUS INJECTION
     Route: 058
     Dates: start: 20110912
  11. INCIVEK [Suspect]
     Indication: HEPATITIS C
     Dosage: 375MG TABLET 2-375 TABLETS PO WITH FOOD
     Route: 048
     Dates: start: 20110912
  12. OXYCODONE HCL [Concomitant]
  13. AMLODIPINE [Concomitant]
  14. CLONAZEPAM [Concomitant]
  15. PAROXETINE HCL [Concomitant]
  16. BENAZEP/HCTZ [Concomitant]
  17. FISH OIL [Concomitant]

REACTIONS (11)
  - CONFUSIONAL STATE [None]
  - BALANCE DISORDER [None]
  - BACK PAIN [None]
  - INCORRECT DOSE ADMINISTERED [None]
  - FATIGUE [None]
  - MEMORY IMPAIRMENT [None]
  - CHROMATURIA [None]
  - DYSPNOEA [None]
  - MUSCULOSKELETAL CHEST PAIN [None]
  - HYPERSOMNIA [None]
  - PALLOR [None]
